FAERS Safety Report 9701462 (Version 1)
Quarter: 2013Q4

REPORT INFORMATION
  Report Type: Spontaneous
  Country: US (occurrence: None)
  Receive Date: 20131120
  Receipt Date: 20131120
  Transmission Date: 20140711
  Serious: Yes (Life-Threatening, Hospitalization)
  Sender: FDA-Public Use
  Company Number: None

PATIENT
  Age: 67 Year
  Sex: Male
  Weight: 74.84 kg

DRUGS (2)
  1. XOFIGO [Suspect]
     Indication: PROSTATE CANCER
     Dates: start: 20130801
  2. XOFIGO [Suspect]
     Indication: METASTASES TO BONE
     Dates: start: 20130801

REACTIONS (12)
  - Back pain [None]
  - Nausea [None]
  - Vomiting [None]
  - Dehydration [None]
  - Malnutrition [None]
  - Weight decreased [None]
  - Fall [None]
  - Anaemia [None]
  - Cystitis [None]
  - Decreased appetite [None]
  - Movement disorder [None]
  - Dysstasia [None]
